FAERS Safety Report 10672355 (Version 1)
Quarter: 2014Q4

REPORT INFORMATION
  Report Type: Spontaneous
  Country: US (occurrence: None)
  Receive Date: 20141219
  Receipt Date: 20141219
  Transmission Date: 20150529
  Serious: Yes (Other)
  Sender: FDA-Public Use
  Company Number: 111405T

PATIENT
  Age: 68 Year
  Sex: Male
  Weight: 90.72 kg

DRUGS (3)
  1. CARDIZEM [Concomitant]
     Active Substance: DILTIAZEM HYDROCHLORIDE
  2. CAMPHOR 4%, MENTHOL 10%, METHYL SAL 30%-EQUATE [Suspect]
     Active Substance: CAMPHOR (NATURAL)\MENTHOL\METHYL SALICYLATE
     Indication: MYALGIA
     Dates: start: 20141128
  3. AMLODIPINE [Concomitant]
     Active Substance: AMLODIPINE BESYLATE

REACTIONS (2)
  - Chemical injury [None]
  - Burns second degree [None]

NARRATIVE: CASE EVENT DATE: 20141128
